FAERS Safety Report 18156838 (Version 1)
Quarter: 2020Q3

REPORT INFORMATION
  Report Type: Spontaneous
  Country: US (occurrence: US)
  Receive Date: 20200817
  Receipt Date: 20200817
  Transmission Date: 20201103
  Serious: Yes (Hospitalization)
  Sender: FDA-Public Use
  Company Number: None

PATIENT
  Age: 68 Year
  Sex: Female
  Weight: 81 kg

DRUGS (1)
  1. CETACAINE ANESTHETIC [Suspect]
     Active Substance: BENZOCAINE\BUTAMBEN\TETRACAINE HYDROCHLORIDE
     Indication: ANAESTHETIC PREMEDICATION
     Route: 061
     Dates: start: 20200730, end: 20200730

REACTIONS (2)
  - Hypoxia [None]
  - Methaemoglobinaemia [None]

NARRATIVE: CASE EVENT DATE: 20200730
